FAERS Safety Report 21131010 (Version 1)
Quarter: 2022Q3

REPORT INFORMATION
  Report Type: Spontaneous
  Country: US (occurrence: None)
  Receive Date: 20220725
  Receipt Date: 20220725
  Transmission Date: 20221027
  Serious: Yes (Hospitalization)
  Sender: FDA-Public Use
  Company Number: None

PATIENT
  Sex: Male
  Weight: 67.5 kg

DRUGS (12)
  1. CILGAVIMAB\TIXAGEVIMAB [Suspect]
     Active Substance: CILGAVIMAB\TIXAGEVIMAB
     Indication: COVID-19 prophylaxis
     Dosage: FREQUENCY : TWICE A DAY;?
     Route: 030
     Dates: start: 20220624, end: 20220624
  2. LOSARTAN [Concomitant]
     Active Substance: LOSARTAN
  3. LEVOTHYROXINE [Concomitant]
     Active Substance: LEVOTHYROXINE
  4. ATORVASTATIN [Concomitant]
     Active Substance: ATORVASTATIN
  5. VITAMIN D3 [Concomitant]
     Active Substance: CHOLECALCIFEROL
  6. COENZYME Q10 [Concomitant]
     Active Substance: DIETARY SUPPLEMENT\UBIDECARENONE
  7. DIETARY SUPPLEMENT\UBIDECARENONE [Concomitant]
     Active Substance: DIETARY SUPPLEMENT\UBIDECARENONE
  8. Fish oi [Concomitant]
  9. ALEVE [Concomitant]
     Active Substance: NAPROXEN SODIUM
  10. ADVIL [Concomitant]
     Active Substance: IBUPROFEN
  11. GLUCOSAMINE [Concomitant]
     Active Substance: GLUCOSAMINE
  12. chronditin [Concomitant]

REACTIONS (5)
  - Pain in extremity [None]
  - Paraesthesia [None]
  - Transient ischaemic attack [None]
  - Quality of life decreased [None]
  - Insomnia [None]
